FAERS Safety Report 19035808 (Version 1)
Quarter: 2021Q1

REPORT INFORMATION
  Report Type: Spontaneous
  Country: GB (occurrence: GB)
  Receive Date: 20210321
  Receipt Date: 20210321
  Transmission Date: 20210420
  Serious: Yes (Hospitalization, Other)
  Sender: FDA-Public Use
  Company Number: GB-TEVA-2021-GB-1890732

PATIENT
  Age: 69 Year
  Sex: Male
  Weight: 90.71 kg

DRUGS (8)
  1. ZEAXANTHIN [Concomitant]
     Active Substance: ZEAXANTHIN
     Dosage: 2 MILLIGRAM DAILY;
  2. AMLODIPINE [Concomitant]
     Active Substance: AMLODIPINE BESYLATE
     Dosage: 10 MILLIGRAM DAILY;
  3. BILBERRY EXTRACT [Concomitant]
     Dosage: 500 MILLIGRAM DAILY;
  4. BECONASE AQ [Concomitant]
     Active Substance: BECLOMETHASONE DIPROPIONATE MONOHYDRATE
     Dosage: 50 MG
  5. DOXAZOSIN MESYLATE. [Concomitant]
     Active Substance: DOXAZOSIN MESYLATE
     Dosage: 2 MILLIGRAM DAILY;
  6. SANDOZ LTD OMEPRAZOLE [Concomitant]
     Active Substance: OMEPRAZOLE
     Dosage: 20 MILLIGRAM DAILY;
  7. LUTEIN [Concomitant]
     Active Substance: LUTEIN
  8. TEVA UK ATORVASTATIN [Suspect]
     Active Substance: ATORVASTATIN
     Indication: BLOOD CHOLESTEROL INCREASED
     Dosage: 20 MG
     Route: 048
     Dates: start: 202009, end: 20210125

REACTIONS (2)
  - Hepatic function abnormal [Unknown]
  - Pruritus [Recovered/Resolved]

NARRATIVE: CASE EVENT DATE: 202009
